FAERS Safety Report 22078187 (Version 1)
Quarter: 2023Q1

REPORT INFORMATION
  Report Type: Spontaneous
  Country: MX (occurrence: MX)
  Receive Date: 20230309
  Receipt Date: 20230309
  Transmission Date: 20230417
  Serious: Yes (Other)
  Sender: FDA-Public Use
  Company Number: MX-PFIZER INC-202300097134

PATIENT
  Age: 85 Year
  Sex: Male

DRUGS (1)
  1. ATIVAN [Suspect]
     Active Substance: LORAZEPAM
     Indication: Sleep disorder
     Dosage: UNK

REACTIONS (4)
  - Suicide threat [Unknown]
  - Off label use [Unknown]
  - Withdrawal syndrome [Unknown]
  - Product supply issue [Unknown]
